FAERS Safety Report 24944219 (Version 2)
Quarter: 2025Q1

REPORT INFORMATION
  Report Type: Report from Study
  Country: US (occurrence: US)
  Receive Date: 20250207
  Receipt Date: 20250227
  Transmission Date: 20250409
  Serious: Yes (Other)
  Sender: ABBVIE
  Company Number: US-ABBVIE-6086766

PATIENT
  Age: 63 Year
  Sex: Male
  Weight: 95.254 kg

DRUGS (3)
  1. HUMIRA [Suspect]
     Active Substance: ADALIMUMAB
     Indication: Crohn^s disease
     Dosage: CITRATE FREE?FORM STRENGTH:40MG
     Route: 058
     Dates: start: 20220222
  2. HUMIRA [Suspect]
     Active Substance: ADALIMUMAB
     Indication: Colitis ulcerative
  3. PANTOPRAZOLE [Concomitant]
     Active Substance: PANTOPRAZOLE
     Indication: Gastrooesophageal reflux disease

REACTIONS (8)
  - Crohn^s disease [Unknown]
  - Sluggishness [Not Recovered/Not Resolved]
  - Iron deficiency [Recovered/Resolved]
  - Faeces discoloured [Recovering/Resolving]
  - Defaecation urgency [Recovering/Resolving]
  - Haematochezia [Recovering/Resolving]
  - Lethargy [Not Recovered/Not Resolved]
  - Influenza [Unknown]

NARRATIVE: CASE EVENT DATE: 20220207
